FAERS Safety Report 9782083 (Version 1)
Quarter: 2013Q4

REPORT INFORMATION
  Report Type: Spontaneous
  Country: US (occurrence: US)
  Receive Date: 20131226
  Receipt Date: 20131226
  Transmission Date: 20140711
  Serious: No
  Sender: FDA-Public Use
  Company Number: US-009507513-1312USA007375

PATIENT
  Age: 48 Year
  Sex: Male

DRUGS (5)
  1. PEGINTRON [Suspect]
     Indication: HEPATITIS C
     Dosage: UNK
     Dates: start: 2006
  2. PEGINTRON [Suspect]
     Dosage: UNK
     Dates: start: 2008, end: 200903
  3. REBETOL [Suspect]
     Indication: HEPATITIS C
     Dosage: UNK
     Route: 048
     Dates: start: 2006
  4. REBETOL [Suspect]
     Dosage: UNK
     Route: 048
     Dates: start: 2008, end: 200903
  5. PRILOSEC [Concomitant]
     Indication: GASTROOESOPHAGEAL REFLUX DISEASE
     Dosage: UNK
     Dates: start: 2006

REACTIONS (2)
  - Granuloma annulare [Unknown]
  - Granuloma annulare [Recovered/Resolved]
